FAERS Safety Report 7541213-X (Version None)
Quarter: 2011Q2

REPORT INFORMATION
  Report Type: 
  Country: None (occurrence: None)
  Receive Date: 20110610
  Receipt Date: 20110608
  Transmission Date: 20111010
  Serious: Yes (Other)
  Sender: FDA-Public Use
  Company Number: US-ABBOTT-10P-163-0643873-00

PATIENT
  Age: 21 Year
  Sex: Female

DRUGS (4)
  1. TRUVADA [Suspect]
     Indication: ANTIVIRAL TREATMENT
     Route: 048
     Dates: start: 20100322
  2. NORVIR [Suspect]
     Indication: ANTIVIRAL TREATMENT
     Route: 048
     Dates: start: 20100322
  3. RALTEGRAVIR [Suspect]
     Indication: ANTIVIRAL TREATMENT
     Route: 048
     Dates: start: 20100322
  4. DARUNAVIR ETHANOLATE [Suspect]
     Indication: ANTIVIRAL TREATMENT
     Route: 048
     Dates: start: 20100322

REACTIONS (2)
  - PREMATURE RUPTURE OF MEMBRANES [None]
  - OLIGOHYDRAMNIOS [None]
